FAERS Safety Report 6493761-1 (Version None)
Quarter: 2009Q4

REPORT INFORMATION
  Report Type: 
  Country: None (occurrence: None)
  Receive Date: 20091214
  Receipt Date: 20081103
  Transmission Date: 20100525
  Serious: Yes (Other)
  Sender: FDA-Public Use
  Company Number: US-BRISTOL-MYERS SQUIBB COMPANY-14362578

PATIENT
  Age: 26 Year
  Sex: Male

DRUGS (4)
  1. ABILIFY [Suspect]
     Indication: MAJOR DEPRESSION
     Dosage: ONCE AT BED TIME
     Route: 048
     Dates: start: 20080913, end: 20081001
  2. ABILIFY [Suspect]
     Indication: CHILDHOOD PSYCHOSIS
     Dosage: ONCE AT BED TIME
     Route: 048
     Dates: start: 20080913, end: 20081001
  3. SEROQUEL [Concomitant]
  4. CELEXA [Concomitant]

REACTIONS (1)
  - PANCREATITIS [None]
